FAERS Safety Report 7510469-1 (Version None)
Quarter: 2011Q2

REPORT INFORMATION
  Report Type: 
  Country: None (occurrence: None)
  Receive Date: 20110527
  Receipt Date: 20110523
  Transmission Date: 20111010
  Serious: No
  Sender: FDA-Public Use
  Company Number: US-PFIZER INC-2011111920

PATIENT
  Age: 11 Year
  Sex: Female
  Weight: 49.887 kg

DRUGS (3)
  1. ADVIL LIQUI-GELS [Suspect]
     Indication: MIGRAINE
     Dosage: UNK
     Route: 048
  2. ADVIL LIQUI-GELS [Suspect]
     Dosage: UNK
     Route: 048
  3. CHILDREN'S ADVIL [Concomitant]
     Indication: MIGRAINE
     Dosage: 3 TABLESPOONS, UNK

REACTIONS (2)
  - DRUG INEFFECTIVE [None]
  - DRUG ADMINISTRATION ERROR [None]
